FAERS Safety Report 22624794 (Version 13)
Quarter: 2023Q4

REPORT INFORMATION
  Report Type: Report from Study
  Country: GB (occurrence: GB)
  Receive Date: 20230621
  Receipt Date: 20231201
  Transmission Date: 20240110
  Serious: Yes (Hospitalization, Other)
  Sender: FDA-Public Use
  Company Number: GB-ABBVIE-5298396

PATIENT
  Age: 73 Year
  Sex: Male

DRUGS (16)
  1. CARBIDOPA\LEVODOPA [Suspect]
     Active Substance: CARBIDOPA\LEVODOPA
     Indication: Parkinson^s disease
     Dosage: 20MG/5MG; MD: 9.6MLS
     Route: 050
     Dates: start: 202306, end: 20230621
  2. CARBIDOPA\LEVODOPA [Suspect]
     Active Substance: CARBIDOPA\LEVODOPA
     Dosage: MD: 9.4?LAST ADMIN DATE JUN 2023
     Route: 050
     Dates: start: 202306
  3. CARBIDOPA\LEVODOPA [Suspect]
     Active Substance: CARBIDOPA\LEVODOPA
     Dosage: MD: 9.5, CR: 2.6, ED:1.6, 20MG/5MG
     Route: 050
     Dates: start: 202306, end: 20230704
  4. CARBIDOPA\LEVODOPA [Suspect]
     Active Substance: CARBIDOPA\LEVODOPA
     Dosage: MD: 9.4  CR: 2.6  ED: 1.7, 20MG/5MG, LAST ADMIN DATE JUL 2023
     Route: 050
     Dates: start: 20230704
  5. CARBIDOPA\LEVODOPA [Suspect]
     Active Substance: CARBIDOPA\LEVODOPA
     Dosage: MD: 9.2 MLS, CR: 2.8MLS/HR, ED:1.7MLS?LAST ADMIN DATE : 2023
     Route: 050
     Dates: start: 202307
  6. CARBIDOPA\LEVODOPA [Suspect]
     Active Substance: CARBIDOPA\LEVODOPA
     Dosage: MD: 9.2 MLS, CR: 3.1 MLS/HR, ED:1.7 MLS, FIRST ADMIN DATE: 2023
     Route: 050
     Dates: end: 202311
  7. CARBIDOPA\LEVODOPA [Suspect]
     Active Substance: CARBIDOPA\LEVODOPA
     Dosage: MD: 9.2 MLS, CR: 2.9 MLS/HR, ED:1.7 MLS?LAST ADMIN DATE 2023
     Route: 050
     Dates: start: 2023
  8. CARBIDOPA\LEVODOPA [Suspect]
     Active Substance: CARBIDOPA\LEVODOPA
     Dosage: MORNING DOSE: 9.2MLS CONTINUOUS RATE: 3.3MLS EXTRA DOSE: 1.7MLS
     Route: 050
     Dates: start: 202311, end: 20231127
  9. CARBIDOPA\LEVODOPA [Suspect]
     Active Substance: CARBIDOPA\LEVODOPA
     Dosage: INCREASE HIS CR BY 0.1MLS, LAST ADMIN DATE: NOV 2023
     Route: 050
     Dates: start: 20231127
  10. CARBIDOPA\LEVODOPA [Suspect]
     Active Substance: CARBIDOPA\LEVODOPA
     Dosage: FIRST ADMIN DATE: NOV 2023
     Route: 050
  11. SINEMET [Concomitant]
     Active Substance: CARBIDOPA\LEVODOPA
     Indication: Product used for unknown indication
     Dosage: HALF, 25/100MG - FREQUENCY TEXT: AT 04:30
     Dates: start: 2023, end: 2023
  12. SINEMET [Concomitant]
     Active Substance: CARBIDOPA\LEVODOPA
     Indication: Product used for unknown indication
     Dosage: ONE TABLET 25/100MG?LAST ADMIN DATE: 2023
     Dates: start: 2023
  13. LANSOPRAZOLE [Concomitant]
     Active Substance: LANSOPRAZOLE
     Indication: Product used for unknown indication
  14. RASAGILINE [Concomitant]
     Active Substance: RASAGILINE
     Indication: Product used for unknown indication
  15. BENSERAZIDE HYDROCHLORIDE\LEVODOPA [Concomitant]
     Active Substance: BENSERAZIDE HYDROCHLORIDE\LEVODOPA
     Indication: Product used for unknown indication
     Dosage: DOSE REDUCED, 12.5/50
     Dates: start: 2023
  16. BENSERAZIDE HYDROCHLORIDE\LEVODOPA [Concomitant]
     Active Substance: BENSERAZIDE HYDROCHLORIDE\LEVODOPA
     Indication: Product used for unknown indication
     Dosage: 25/1
     Dates: end: 2023

REACTIONS (36)
  - Loss of consciousness [Not Recovered/Not Resolved]
  - Parkinson^s disease [Not Recovered/Not Resolved]
  - Emotional distress [Unknown]
  - Cognitive disorder [Unknown]
  - Frequent bowel movements [Recovered/Resolved]
  - Fatigue [Not Recovered/Not Resolved]
  - Lethargy [Not Recovered/Not Resolved]
  - Therapeutic product effect incomplete [Unknown]
  - On and off phenomenon [Not Recovered/Not Resolved]
  - Device physical property issue [Not Recovered/Not Resolved]
  - Bradykinesia [Not Recovered/Not Resolved]
  - Device issue [Not Recovered/Not Resolved]
  - Joint swelling [Not Recovered/Not Resolved]
  - Device issue [Recovered/Resolved]
  - Weight decreased [Recovered/Resolved]
  - Abnormal dreams [Not Recovered/Not Resolved]
  - Diarrhoea [Recovered/Resolved]
  - Stoma site discharge [Unknown]
  - Hypotension [Recovered/Resolved]
  - Feeling abnormal [Unknown]
  - Depressed mood [Unknown]
  - Amnesia [Not Recovered/Not Resolved]
  - Malaise [Recovered/Resolved]
  - Drug ineffective [Not Recovered/Not Resolved]
  - Abdominal pain [Unknown]
  - Hypertension [Recovering/Resolving]
  - Sleep disorder [Not Recovered/Not Resolved]
  - Adverse drug reaction [Unknown]
  - Foot deformity [Unknown]
  - Dizziness [Recovered/Resolved]
  - Freezing phenomenon [Not Recovered/Not Resolved]
  - Unevaluable event [Unknown]
  - Hypotension [Recovering/Resolving]
  - Dizziness [Not Recovered/Not Resolved]
  - Anxiety [Unknown]
  - Dystonia [Unknown]

NARRATIVE: CASE EVENT DATE: 20230101
